FAERS Safety Report 20120275 (Version 1)
Quarter: 2021Q4

REPORT INFORMATION
  Report Type: Spontaneous
  Country: US (occurrence: None)
  Receive Date: 20211126
  Receipt Date: 20211126
  Transmission Date: 20220303
  Serious: Yes (Death)
  Sender: FDA-Public Use
  Company Number: None

PATIENT
  Age: 73 Year
  Sex: Female
  Weight: 94 kg

DRUGS (1)
  1. PADCEV [Suspect]
     Active Substance: ENFORTUMAB VEDOTIN-EJFV
     Indication: Bladder cancer
     Dosage: OTHER FREQUENCY : DAY 1, 8, 15;?
     Route: 040
     Dates: start: 20210520, end: 20210608

REACTIONS (1)
  - Skin reaction [None]

NARRATIVE: CASE EVENT DATE: 20210609
